FAERS Safety Report 9785076 (Version 2)
Quarter: 2014Q1

REPORT INFORMATION
  Report Type: Spontaneous
  Country: FR (occurrence: FR)
  Receive Date: 20131227
  Receipt Date: 20140128
  Transmission Date: 20141002
  Serious: Yes (Other)
  Sender: FDA-Public Use
  Company Number: FR-ASTRAZENECA-2013SE93195

PATIENT
  Age: 19983 Day
  Sex: Male
  Weight: 89 kg

DRUGS (5)
  1. CAPRELSA [Suspect]
     Indication: MEDULLARY THYROID CANCER
     Route: 048
     Dates: start: 20131031, end: 20131209
  2. DOLIPRANE [Concomitant]
     Indication: PAIN
     Dosage: ON REQUEST
     Route: 048
  3. SPASFON [Concomitant]
     Indication: PAIN
     Dosage: ON REQUEST
     Route: 048
  4. MICARDIS [Concomitant]
     Route: 048
  5. CITALOPRAM [Concomitant]
     Indication: ANXIETY
     Route: 048

REACTIONS (3)
  - Loss of consciousness [Recovered/Resolved]
  - Epilepsy [Recovered/Resolved]
  - Folliculitis [Not Recovered/Not Resolved]
